FAERS Safety Report 19149989 (Version 4)
Quarter: 2022Q4

REPORT INFORMATION
  Report Type: Report from Study
  Country: US (occurrence: US)
  Receive Date: 20210417
  Receipt Date: 20221107
  Transmission Date: 20230113
  Serious: No
  Sender: FDA-Public Use
  Company Number: NVSC2021US087204

PATIENT
  Sex: Female

DRUGS (1)
  1. COSENTYX [Suspect]
     Active Substance: SECUKINUMAB
     Indication: Psoriatic arthropathy
     Dosage: UNK, BENEATH THE SKIN, USUALLY VIA INJECTION (STARTED 2 YEARS AGO)
     Route: 058
     Dates: start: 2020, end: 2020

REACTIONS (3)
  - Nausea [Unknown]
  - Stomatitis [Unknown]
  - Illness [Recovered/Resolved]

NARRATIVE: CASE EVENT DATE: 20200101
